FAERS Safety Report 13479155 (Version 5)
Quarter: 2017Q3

REPORT INFORMATION
  Report Type: Report from Study
  Country: US (occurrence: US)
  Receive Date: 20170425
  Receipt Date: 20170803
  Transmission Date: 20171127
  Serious: Yes (Death, Hospitalization, Other)
  Sender: FDA-Public Use
  Company Number: US-AMGEN-USASL2017060478

PATIENT
  Age: 86 Year
  Sex: Female

DRUGS (2)
  1. PROLIA [Suspect]
     Active Substance: DENOSUMAB
     Indication: OSTEOPOROSIS POSTMENOPAUSAL
     Dosage: 60 MG/ML, Q6MO
     Route: 058
     Dates: end: 20160613
  2. PROLIA [Suspect]
     Active Substance: DENOSUMAB
     Indication: SENILE OSTEOPOROSIS

REACTIONS (13)
  - Death [Fatal]
  - Coronary artery disease [Unknown]
  - Urosepsis [Unknown]
  - Fracture [Unknown]
  - Ulcer [Unknown]
  - Anaemia [Unknown]
  - Off label use [Unknown]
  - Type 2 diabetes mellitus [Unknown]
  - Urinary tract infection [Unknown]
  - Malnutrition [Unknown]
  - Hospitalisation [Unknown]
  - Immobile [Unknown]
  - Atrial fibrillation [Unknown]

NARRATIVE: CASE EVENT DATE: 2017
